FAERS Safety Report 9626585 (Version 2)
Quarter: 2013Q4

REPORT INFORMATION
  Report Type: Spontaneous
  Country: US (occurrence: US)
  Receive Date: 20131016
  Receipt Date: 20131016
  Transmission Date: 20140711
  Serious: Yes (Life-Threatening, Hospitalization, Disabling, Other)
  Sender: FDA-Public Use
  Company Number: US-CELGENEUS-163-21880-13074357

PATIENT
  Age: 50 Year
  Sex: Male

DRUGS (3)
  1. REVLIMID [Suspect]
     Indication: PLASMA CELL MYELOMA
     Dosage: 10 MILLIGRAM
     Route: 048
     Dates: start: 201207, end: 201304
  2. REVLIMID [Suspect]
     Indication: AMYLOIDOSIS
  3. SPIRONOLACTONE [Concomitant]
     Indication: CARDIAC AMYLOIDOSIS
     Route: 065

REACTIONS (3)
  - Cardiac amyloidosis [Recovered/Resolved]
  - Anaemia [Not Recovered/Not Resolved]
  - Pulmonary sepsis [Recovered/Resolved]
